FAERS Safety Report 6520579-3 (Version None)
Quarter: 2009Q4

REPORT INFORMATION
  Report Type: 
  Country: None (occurrence: None)
  Receive Date: 20091229
  Receipt Date: 20091221
  Transmission Date: 20100525
  Serious: Yes (Hospitalization, Other)
  Sender: FDA-Public Use
  Company Number: US-BAYER-200916140BCC

PATIENT
  Age: 82 Year
  Sex: Male
  Weight: 78 kg

DRUGS (9)
  1. ASPIRIN [Suspect]
     Indication: THROMBOSIS PROPHYLAXIS
     Dosage: UNIT DOSE: 81 MG
     Route: 048
  2. PLAVIX [Suspect]
     Indication: CORONARY ARTERIAL STENT INSERTION
     Dosage: TOTAL DAILY DOSE: 75 MG  UNIT DOSE: 75 MG
     Route: 048
     Dates: start: 20080101, end: 20090701
  3. METOPROLOL TARTRATE [Concomitant]
     Route: 065
  4. CILOSTAZOL [Concomitant]
     Route: 065
  5. ROPIMROLE [Concomitant]
     Route: 065
  6. FUROSEMIDE [Concomitant]
     Route: 065
  7. KLOR-CON M10 [Concomitant]
     Route: 065
  8. GABAPENTIN [Concomitant]
     Route: 065
  9. BONIVA [Concomitant]
     Route: 065

REACTIONS (5)
  - CRANIOTOMY [None]
  - FALL [None]
  - HEAD INJURY [None]
  - PNEUMONIA [None]
  - TRAUMATIC HAEMORRHAGE [None]
